FAERS Safety Report 9492370 (Version 3)
Quarter: 2013Q4

REPORT INFORMATION
  Report Type: Spontaneous
  Country: JP (occurrence: JP)
  Receive Date: 20130830
  Receipt Date: 20131011
  Transmission Date: 20140711
  Serious: Yes (Other)
  Sender: FDA-Public Use
  Company Number: JP-PFIZER INC-2013249345

PATIENT
  Age: 55 Year
  Sex: Female

DRUGS (3)
  1. IRINOTECAN HCL [Suspect]
     Indication: SMALL INTESTINE CARCINOMA
     Dosage: UNK, ONCE A DAY
     Route: 041
  2. FLUOROURACIL [Suspect]
     Indication: SMALL INTESTINE CARCINOMA
     Dosage: UNK
     Route: 040
  3. FOLINIC ACID [Suspect]
     Indication: SMALL INTESTINE CARCINOMA
     Dosage: UNK

REACTIONS (1)
  - Lung disorder [Unknown]
